FAERS Safety Report 5567604-4 (Version None)
Quarter: 2007Q4

REPORT INFORMATION
  Report Type: 
  Country: None (occurrence: None)
  Receive Date: 20071214
  Receipt Date: 20071205
  Transmission Date: 20080405
  Serious: Yes (Hospitalization)
  Sender: FDA-Public Use
  Company Number: 2007337028

PATIENT
  Age: 27 Year
  Sex: Female

DRUGS (3)
  1. ACTIFED [Suspect]
     Indication: UPPER RESPIRATORY TRACT INFECTION
     Dosage: 2 UNIT DOSE TOTAL, ORAL
     Route: 048
     Dates: start: 20071127, end: 20071127
  2. AUGMENTIN '125' [Suspect]
     Indication: APICAL GRANULOMA
     Dosage: 2 GRAMS DAILY (2 GRAM) ORAL
     Route: 048
     Dates: start: 20071122, end: 20071126
  3. OKI                    (KETOPROFEN LYSINE) [Suspect]
     Indication: HEADACHE
     Dosage: 60 DROPS TOTAL, ORAL
     Route: 048
     Dates: start: 20071126, end: 20071126

REACTIONS (3)
  - DIZZINESS [None]
  - ERYTHEMA MULTIFORME [None]
  - MUSCLE SPASMS [None]
